FAERS Safety Report 7083365-4 (Version None)
Quarter: 2010Q4

REPORT INFORMATION
  Report Type: 
  Country: None (occurrence: None)
  Receive Date: 20101104
  Receipt Date: 20101027
  Transmission Date: 20110411
  Serious: Yes (Other)
  Sender: FDA-Public Use
  Company Number: PHHY2010JP29193

PATIENT

DRUGS (3)
  1. FLUVASTATIN [Suspect]
     Indication: CEREBROVASCULAR SPASM
     Dosage: 30 MG PER DAY
     Route: 048
  2. CILOSTAZOL [Suspect]
     Indication: CEREBROVASCULAR SPASM
     Dosage: 200 MG PER DAY
     Route: 048
  3. VOLTADVANCE [Suspect]

REACTIONS (1)
  - LIVER DISORDER [None]
